FAERS Safety Report 12631190 (Version 2)
Quarter: 2016Q3

REPORT INFORMATION
  Report Type: Spontaneous
  Country: US (occurrence: US)
  Receive Date: 20160808
  Receipt Date: 20160808
  Transmission Date: 20161109
  Serious: No
  Sender: FDA-Public Use
  Company Number: US-BEH-2015052663

PATIENT
  Sex: Female
  Weight: 63 kg

DRUGS (21)
  1. ARMOUR THYROID [Concomitant]
     Active Substance: THYROID, PORCINE
  2. RIZATRIPTAN. [Concomitant]
     Active Substance: RIZATRIPTAN
  3. FISH OIL [Concomitant]
     Active Substance: FISH OIL
  4. ACETAMINOPHEN. [Concomitant]
     Active Substance: ACETAMINOPHEN
  5. VITAMIN D3 [Concomitant]
     Active Substance: CHOLECALCIFEROL
  6. GLUTAMINE [Concomitant]
     Active Substance: GLUTAMINE
  7. CYTOMEL [Concomitant]
     Active Substance: LIOTHYRONINE SODIUM
  8. HIZENTRA [Suspect]
     Active Substance: HUMAN IMMUNOGLOBULIN G
     Indication: LYME DISEASE
     Route: 058
  9. DIPHENHYDRAMINE. [Concomitant]
     Active Substance: DIPHENHYDRAMINE
     Indication: ANAPHYLACTIC REACTION
  10. LIDOCAINE. [Concomitant]
     Active Substance: LIDOCAINE
  11. OXYGEN. [Concomitant]
     Active Substance: OXYGEN
  12. MULTIVITAMIN [Concomitant]
     Active Substance: VITAMINS
  13. EPIPEN [Concomitant]
     Active Substance: EPINEPHRINE
     Indication: ANAPHYLACTIC REACTION
  14. L-CARNITINE [Concomitant]
     Active Substance: LEVOCARNITINE
  15. HIZENTRA [Suspect]
     Active Substance: HUMAN IMMUNOGLOBULIN G
     Indication: LYME DISEASE
     Route: 058
  16. ESTRADIOL. [Concomitant]
     Active Substance: ESTRADIOL
  17. ADVIL [Concomitant]
     Active Substance: IBUPROFEN
  18. FLUDROCORTISONE [Concomitant]
     Active Substance: FLUDROCORTISONE
  19. VITAMIN C [Concomitant]
     Active Substance: ASCORBIC ACID
  20. CO-Q [Concomitant]
  21. PROBIOTIC [Concomitant]
     Active Substance: PROBIOTICS NOS

REACTIONS (2)
  - Headache [Unknown]
  - Fatigue [Unknown]
